FAERS Safety Report 5610840-9 (Version None)
Quarter: 2008Q1

REPORT INFORMATION
  Report Type: 
  Country: None (occurrence: None)
  Receive Date: 20080201
  Receipt Date: 20080124
  Transmission Date: 20080703
  Serious: Yes (Hospitalization)
  Sender: FDA-Public Use
  Company Number: US-AVENTIS-200810558US

PATIENT
  Age: 44 Year
  Sex: Male

DRUGS (2)
  1. KETEK [Suspect]
     Indication: UPPER RESPIRATORY TRACT INFECTION
     Route: 048
  2. ASPIRIN [Concomitant]

REACTIONS (9)
  - ALANINE AMINOTRANSFERASE INCREASED [None]
  - ASPARTATE AMINOTRANSFERASE INCREASED [None]
  - BACK PAIN [None]
  - HEADACHE [None]
  - HEPATOCELLULAR INJURY [None]
  - INFLUENZA [None]
  - MUSCULOSKELETAL STIFFNESS [None]
  - PYREXIA [None]
  - RED BLOOD CELL COUNT INCREASED [None]
